FAERS Safety Report 7504230-1 (Version None)
Quarter: 2011Q2

REPORT INFORMATION
  Report Type: 
  Country: None (occurrence: None)
  Receive Date: 20110525
  Receipt Date: 20110516
  Transmission Date: 20111010
  Serious: Yes (Death)
  Sender: FDA-Public Use
  Company Number: US-BAYER-200915241NA

PATIENT
  Sex: Male

DRUGS (1)
  1. TRASYLOL [Suspect]
     Indication: CARDIAC OPERATION
     Dates: start: 20070426

REACTIONS (5)
  - ANXIETY [None]
  - ADVERSE EVENT [None]
  - RENAL FAILURE [None]
  - PAIN [None]
  - DEATH [None]
